FAERS Safety Report 15617831 (Version 3)
Quarter: 2018Q4

REPORT INFORMATION
  Report Type: Spontaneous
  Country: IL (occurrence: IL)
  Receive Date: 20181114
  Receipt Date: 20181231
  Transmission Date: 20190205
  Serious: Yes (Death, Hospitalization)
  Sender: FDA-Public Use
  Company Number: IL-ALLERGAN-1853388US

PATIENT
  Age: 80 Year
  Sex: Female

DRUGS (2)
  1. FLUCONAZOLE. [Concomitant]
     Active Substance: FLUCONAZOLE
     Indication: PRODUCT USED FOR UNKNOWN INDICATION
     Route: 042
  2. CEFTAZIDIME;AVIBACTAM - BP [Suspect]
     Active Substance: AVIBACTAM SODIUM\CEFTAZIDIME
     Indication: ENTEROBACTER INFECTION
     Dosage: 2.5 G, TID
     Route: 042
     Dates: end: 20181101

REACTIONS (5)
  - Localised infection [Unknown]
  - Eosinophilia [Recovering/Resolving]
  - Erythema [Recovering/Resolving]
  - Infection [Fatal]
  - Rash [Unknown]

NARRATIVE: CASE EVENT DATE: 20181031
